FAERS Safety Report 13553383 (Version 1)
Quarter: 2017Q2

REPORT INFORMATION
  Report Type: Spontaneous
  Country: US (occurrence: US)
  Receive Date: 20170516
  Receipt Date: 20170516
  Transmission Date: 20170830
  Serious: Yes (Other)
  Sender: FDA-Public Use
  Company Number: None

PATIENT
  Age: 70 Year
  Sex: Male
  Weight: 69.75 kg

DRUGS (4)
  1. VITAMINS FOR OVER 50 [Concomitant]
  2. CIALIS [Suspect]
     Active Substance: TADALAFIL
     Indication: ERECTILE DYSFUNCTION
     Dosage: ?          QUANTITY:1 TABLET(S);?
     Dates: start: 20160217, end: 20170218
  3. FINESTERIDE [Concomitant]
     Active Substance: FINASTERIDE
  4. PROPRANOLOL [Concomitant]
     Active Substance: PROPRANOLOL HYDROCHLORIDE

REACTIONS (4)
  - Viral upper respiratory tract infection [None]
  - Deafness [None]
  - Tinnitus [None]
  - Ear infection [None]

NARRATIVE: CASE EVENT DATE: 20170218
